FAERS Safety Report 8993588 (Version 2)
Quarter: 2013Q1

REPORT INFORMATION
  Report Type: Report from Study
  Country: IT (occurrence: IT)
  Receive Date: 20130102
  Receipt Date: 20130306
  Transmission Date: 20140127
  Serious: Yes (Hospitalization)
  Sender: FDA-Public Use
  Company Number: IT-TEVA-378386USA

PATIENT
  Age: 86 Year
  Sex: Female

DRUGS (8)
  1. TREANDA [Suspect]
     Indication: DIFFUSE LARGE B-CELL LYMPHOMA
     Dosage: UID/QD
     Route: 042
     Dates: start: 20121001, end: 20121002
  2. PEGFILGRASTIM [Concomitant]
     Indication: PROPHYLAXIS
     Route: 058
     Dates: start: 20121003
  3. BACTRIM [Concomitant]
     Dates: start: 20121001
  4. VALACICLOVIR [Concomitant]
     Dates: start: 20121001
  5. ALLOPURINOL [Concomitant]
     Dates: start: 20121001
  6. EUTIROX [Concomitant]
  7. ROCALTROL [Concomitant]
  8. DIFOSFONAL [Concomitant]

REACTIONS (2)
  - Acute coronary syndrome [Unknown]
  - Cardiac failure [Unknown]
